FAERS Safety Report 20790666 (Version 1)
Quarter: 2022Q2

REPORT INFORMATION
  Report Type: Spontaneous
  Country: US (occurrence: None)
  Receive Date: 20220505
  Receipt Date: 20220505
  Transmission Date: 20220720
  Serious: Yes (Other)
  Sender: FDA-Public Use
  Company Number: None

PATIENT

DRUGS (1)
  1. NEUTROGENA T/SAL THERAPEUTIC [Suspect]
     Active Substance: SALICYLIC ACID
     Indication: Dandruff

REACTIONS (5)
  - Skin swelling [None]
  - Skin irritation [None]
  - Rash erythematous [None]
  - Skin discomfort [None]
  - Skin warm [None]

NARRATIVE: CASE EVENT DATE: 20220505
